FAERS Safety Report 8385330 (Version 2)
Quarter: 2012Q4

REPORT INFORMATION
  Report Type: 
  Country: US (occurrence: US)
  Receive Date: 20120119
  Receipt Date: 20121003
  Transmission Date: 20130627
  Serious: Yes (Other)
  Sender: FDA-Public Use
  Company Number: US-RB-036290-12

PATIENT
  Age: 0 Year
  Sex: Male

DRUGS (4)
  1. SUBOXONE [Suspect]
     Indication: DRUG DEPENDENCE
     Dosage: Various doses
     Route: 064
     Dates: start: 20110221, end: 20110515
  2. SUBUTEX [Suspect]
     Route: 064
     Dates: start: 20110516, end: 201107
  3. SUBUTEX [Suspect]
     Indication: DRUG DEPENDENCE
     Dosage: Tapered from 16 mg to 8 mg/daily
     Route: 064
     Dates: start: 201107, end: 20111130
  4. PRENATAL VITAMINS [Concomitant]
     Indication: PREGNANCY
     Route: 065
     Dates: start: 20110221, end: 20111130

REACTIONS (2)
  - Jaundice neonatal [Recovered/Resolved]
  - Foetal exposure during pregnancy [Recovered/Resolved]
